FAERS Safety Report 8160601-4 (Version None)
Quarter: 2012Q1

REPORT INFORMATION
  Report Type: 
  Country: None (occurrence: None)
  Receive Date: 20120223
  Receipt Date: 20120214
  Transmission Date: 20120608
  Serious: Yes (Other)
  Sender: FDA-Public Use
  Company Number: US-ASTRAZENECA-2012SE10365

PATIENT
  Age: 68 Year
  Sex: Male

DRUGS (13)
  1. MUCINEX [Concomitant]
  2. THEOPHYLLINE [Concomitant]
  3. SPIRIVA [Concomitant]
     Dosage: ONCE A DAY
  4. FUROSEMIDE [Concomitant]
  5. POTASSIUM CL [Concomitant]
  6. METOPROLOL TARTRATE [Concomitant]
  7. SIMVASTATIN [Concomitant]
  8. BROVANA [Concomitant]
     Dosage: 15 MCG/2 ML BID
  9. GLIPIZIDE [Concomitant]
  10. BUDESONIDE [Concomitant]
     Dosage: 25 MCG BID
  11. METFORMIN HCL [Concomitant]
  12. NEXIUM [Suspect]
     Route: 048
  13. DIGOXIN [Concomitant]
     Dosage: 250 MCG DAILY

REACTIONS (9)
  - INFLUENZA LIKE ILLNESS [None]
  - DIABETES MELLITUS [None]
  - CHEST PAIN [None]
  - DYSPNOEA [None]
  - PULMONARY CONGESTION [None]
  - HAEMORRHAGE [None]
  - INCREASED BRONCHIAL SECRETION [None]
  - LUNG DISORDER [None]
  - PNEUMONIA [None]
